FAERS Safety Report 23586997 (Version 1)
Quarter: 2024Q1

REPORT INFORMATION
  Report Type: Spontaneous
  Country: US (occurrence: None)
  Receive Date: 20240301
  Receipt Date: 20240301
  Transmission Date: 20240410
  Serious: Yes (Hospitalization)
  Sender: FDA-Public Use
  Company Number: None

PATIENT
  Age: 16 Day
  Sex: Female
  Weight: 79.1 kg

DRUGS (1)
  1. PEMBROLIZUMAB [Suspect]
     Active Substance: PEMBROLIZUMAB
     Indication: Neoplasm malignant
     Dosage: OTHER FREQUENCY : MONTHLY;?
     Route: 040
     Dates: start: 20230324, end: 20230505

REACTIONS (2)
  - Respiratory failure [None]
  - Pneumonitis [None]

NARRATIVE: CASE EVENT DATE: 20230513
